FAERS Safety Report 6558365-0 (Version None)
Quarter: 2010Q1

REPORT INFORMATION
  Report Type: 
  Country: None (occurrence: None)
  Receive Date: 20100129
  Receipt Date: 20100121
  Transmission Date: 20100710
  Serious: Yes (Death, Hospitalization)
  Sender: FDA-Public Use
  Company Number: QA-MERCK-1001USA02730

PATIENT
  Age: 39 Year
  Sex: Male

DRUGS (2)
  1. DECADRON [Suspect]
     Indication: MULTIPLE MYELOMA
     Route: 048
     Dates: start: 20070601
  2. DECADRON [Suspect]
     Indication: SPINAL CORD COMPRESSION
     Route: 048
     Dates: start: 20070601

REACTIONS (1)
  - STRONGYLOIDIASIS [None]
